FAERS Safety Report 25206569 (Version 1)
Quarter: 2025Q2

REPORT INFORMATION
  Report Type: Spontaneous
  Country: ES (occurrence: ES)
  Receive Date: 20250417
  Receipt Date: 20250417
  Transmission Date: 20250716
  Serious: Yes (Other)
  Sender: RANBAXY
  Company Number: ES-SUN PHARMACEUTICAL INDUSTRIES LTD-2025R1-503833

PATIENT
  Age: 31 Year
  Sex: Female

DRUGS (2)
  1. ENOXAPARIN SODIUM [Suspect]
     Active Substance: ENOXAPARIN SODIUM
     Indication: Pulmonary arterial hypertension
     Route: 065
  2. SILDENAFIL [Suspect]
     Active Substance: SILDENAFIL
     Indication: Pulmonary arterial hypertension
     Route: 065

REACTIONS (3)
  - Exposure during pregnancy [Unknown]
  - Premature delivery [Unknown]
  - Therapeutic response decreased [Unknown]
